FAERS Safety Report 12206891 (Version 1)
Quarter: 2016Q1

REPORT INFORMATION
  Report Type: Spontaneous
  Country: US (occurrence: None)
  Receive Date: 20160323
  Receipt Date: 20160323
  Transmission Date: 20160526
  Serious: Yes (Hospitalization, Other)
  Sender: FDA-Public Use
  Company Number: None

PATIENT
  Age: 37 Year
  Sex: Male
  Weight: 66.23 kg

DRUGS (1)
  1. LEVETIRACETAM 750 MG [Suspect]
     Active Substance: LEVETIRACETAM
     Dosage: 3
     Route: 048

REACTIONS (2)
  - Drug level decreased [None]
  - Seizure [None]

NARRATIVE: CASE EVENT DATE: 20160315
